FAERS Safety Report 19649550 (Version 1)
Quarter: 2021Q3

REPORT INFORMATION
  Report Type: Report from Study
  Country: IT (occurrence: IT)
  Receive Date: 20210803
  Receipt Date: 20210803
  Transmission Date: 20211014
  Serious: Yes (Death, Hospitalization, Other)
  Sender: FDA-Public Use
  Company Number: IT-BRISTOL-MYERS SQUIBB COMPANY-BMS-2021-075197

PATIENT
  Age: 68 Year
  Sex: Male

DRUGS (1)
  1. APIXABAN [Suspect]
     Active Substance: APIXABAN
     Indication: PRODUCT USED FOR UNKNOWN INDICATION
     Dosage: 5 MG, 2 TABLETS DAILY
     Route: 048
     Dates: start: 20210519

REACTIONS (3)
  - Emphysema [Unknown]
  - Cardiac arrest [Fatal]
  - Renal disorder [Unknown]

NARRATIVE: CASE EVENT DATE: 20210630
